FAERS Safety Report 21518776 (Version 1)
Quarter: 2022Q4

REPORT INFORMATION
  Report Type: Spontaneous
  Country: DE (occurrence: DE)
  Receive Date: 20221028
  Receipt Date: 20221028
  Transmission Date: 20230113
  Serious: Yes (Hospitalization)
  Sender: FDA-Public Use
  Company Number: None

PATIENT
  Age: 85 Year
  Sex: Male

DRUGS (1)
  1. AVASTIN [Suspect]
     Active Substance: BEVACIZUMAB
     Indication: Age-related macular degeneration
     Dosage: 0.05 ML CONTAINS 1.042 MG BEVACIZUMAB?ON 29/SEP/2022, HE RECEIVED MOST RECENT DOSE OF BEVACIZUMAB.
     Route: 050
     Dates: start: 20220929

REACTIONS (2)
  - Endophthalmitis [Unknown]
  - Visual impairment [Unknown]

NARRATIVE: CASE EVENT DATE: 20221014
